FAERS Safety Report 17201985 (Version 1)
Quarter: 2019Q4

REPORT INFORMATION
  Report Type: Spontaneous
  Country: FR (occurrence: FR)
  Receive Date: 20191226
  Receipt Date: 20191226
  Transmission Date: 20200122
  Serious: Yes (Other)
  Sender: FDA-Public Use
  Company Number: FR-BAYER-2019-232371

PATIENT
  Age: 59 Year

DRUGS (3)
  1. NEXAVAR [Suspect]
     Active Substance: SORAFENIB
     Indication: HEPATOCELLULAR CARCINOMA
     Dosage: UNK
     Dates: start: 201804
  2. STIVARGA [Suspect]
     Active Substance: REGORAFENIB
     Indication: HEPATOCELLULAR CARCINOMA
     Dosage: ? DOSE
     Dates: start: 201901, end: 2019
  3. STIVARGA [Suspect]
     Active Substance: REGORAFENIB
     Indication: HEPATOCELLULAR CARCINOMA
     Dosage: UNK
     Dates: start: 2019

REACTIONS (10)
  - Hepatomegaly [None]
  - Vomiting [None]
  - Tumour thrombosis [None]
  - Alpha 1 foetoprotein abnormal [None]
  - Hepatic pain [None]
  - Diarrhoea [None]
  - Hepatocellular carcinoma [None]
  - Abnormal loss of weight [None]
  - Off label use [None]
  - Palmar-plantar erythrodysaesthesia syndrome [None]

NARRATIVE: CASE EVENT DATE: 20191218
